FAERS Safety Report 7095176-4 (Version None)
Quarter: 2010Q4

REPORT INFORMATION
  Report Type: 
  Country: None (occurrence: None)
  Receive Date: 20101111
  Receipt Date: 20101030
  Transmission Date: 20110411
  Serious: Yes (Other)
  Sender: FDA-Public Use
  Company Number: DE-PAR PHARMACEUTICAL, INC-2010SCPR002279

PATIENT
  Age: 18 Year
  Sex: Male

DRUGS (1)
  1. RISPERIDONE [Suspect]
     Indication: SCHIZOPHRENIA, PARANOID TYPE
     Dosage: 6 MG, PER DAY
     Route: 065

REACTIONS (3)
  - DRUG WITHDRAWAL SYNDROME [None]
  - EXTRAPYRAMIDAL DISORDER [None]
  - HEARING IMPAIRED [None]
